FAERS Safety Report 5899533-0 (Version None)
Quarter: 2008Q3

REPORT INFORMATION
  Report Type: 
  Country: None (occurrence: None)
  Receive Date: 20080924
  Receipt Date: 20080911
  Transmission Date: 20090109
  Serious: Yes (Death)
  Sender: FDA-Public Use
  Company Number: 8037110

PATIENT
  Age: 69 Year
  Sex: Male
  Weight: 85 kg

DRUGS (2)
  1. XYZAL [Suspect]
     Indication: ECZEMA
     Dosage: 5 MG 1/D PO
     Route: 048
     Dates: start: 20080815
  2. DICLOFENAC [Concomitant]

REACTIONS (1)
  - JAUNDICE [None]
